FAERS Safety Report 5828695-6 (Version None)
Quarter: 2008Q3

REPORT INFORMATION
  Report Type: 
  Country: None (occurrence: None)
  Receive Date: 20080729
  Receipt Date: 20080729
  Transmission Date: 20090109
  Serious: No
  Sender: FDA-Public Use
  Company Number: None

PATIENT
  Sex: Female
  Weight: 60.782 kg

DRUGS (1)
  1. FOSAMAX [Suspect]
     Indication: OSTEOPOROSIS
     Dosage: ONE WEEKLY PO
     Route: 048
     Dates: start: 20080117, end: 20080621

REACTIONS (5)
  - ACTIVITIES OF DAILY LIVING IMPAIRED [None]
  - BACK PAIN [None]
  - BONE PAIN [None]
  - MYALGIA [None]
  - PAIN IN EXTREMITY [None]
